FAERS Safety Report 24625467 (Version 1)
Quarter: 2024Q4

REPORT INFORMATION
  Report Type: Spontaneous
  Country: US (occurrence: None)
  Receive Date: 20241115
  Receipt Date: 20241115
  Transmission Date: 20250115
  Serious: Yes (Hospitalization)
  Sender: Public
  Company Number: None

PATIENT
  Age: 79 Year
  Sex: Male
  Weight: 106.65 kg

DRUGS (2)
  1. ELIQUIS [Suspect]
     Active Substance: APIXABAN
     Indication: Heart rate irregular
     Dates: start: 20211101, end: 20240708
  2. ELIQUIS [Suspect]
     Active Substance: APIXABAN
     Indication: Thrombosis prophylaxis

REACTIONS (6)
  - Intentional dose omission [None]
  - Thrombosis [None]
  - Skin lesion [None]
  - Contusion [None]
  - Pulmonary embolism [None]
  - Dry gangrene [None]

NARRATIVE: CASE EVENT DATE: 20240708
